FAERS Safety Report 12088319 (Version 3)
Quarter: 2017Q4

REPORT INFORMATION
  Report Type: Report from Study
  Country: GB (occurrence: GB)
  Receive Date: 20160218
  Receipt Date: 20171218
  Transmission Date: 20180320
  Serious: Yes (Other)
  Sender: FDA-Public Use
  Company Number: GB-ROCHE-1711685

PATIENT

DRUGS (1)
  1. RITUXIMAB. [Suspect]
     Active Substance: RITUXIMAB
     Indication: SYSTEMIC LUPUS ERYTHEMATOSUS
     Route: 065

REACTIONS (7)
  - Respiratory tract infection [Unknown]
  - Infection [Unknown]
  - Urinary tract infection [Unknown]
  - Candida infection [Unknown]
  - Herpes zoster [Unknown]
  - Gastrointestinal infection [Unknown]
  - Skin infection [Unknown]
